FAERS Safety Report 4780318-3 (Version None)
Quarter: 2005Q3

REPORT INFORMATION
  Report Type: 
  Country: None (occurrence: None)
  Receive Date: 20050926
  Receipt Date: 20050913
  Transmission Date: 20060218
  Serious: Yes (Hospitalization, Other)
  Sender: FDA-Public Use
  Company Number: 2005127648

PATIENT
  Sex: Male
  Weight: 74.8435 kg

DRUGS (5)
  1. VIAGRA [Suspect]
     Indication: ERECTILE DYSFUNCTION
     Dosage: 100 MG, AS NECESSARY, ORAL
     Route: 048
  2. CALAN [Concomitant]
  3. DIGOXIN [Concomitant]
  4. ZANTAC [Concomitant]
  5. CAFERGOT [Concomitant]

REACTIONS (5)
  - ABDOMINAL PAIN UPPER [None]
  - ANEURYSM [None]
  - DRUG EFFECT DECREASED [None]
  - GASTROINTESTINAL DISORDER [None]
  - SCAR [None]
